FAERS Safety Report 7454215-9 (Version None)
Quarter: 2011Q2

REPORT INFORMATION
  Report Type: 
  Country: None (occurrence: None)
  Receive Date: 20110503
  Receipt Date: 20110427
  Transmission Date: 20111010
  Serious: No
  Sender: FDA-Public Use
  Company Number: US-BIOGENIDEC-2011BI016010

PATIENT
  Age: 33 Year
  Sex: Female

DRUGS (1)
  1. TYSABRI [Suspect]
     Indication: MULTIPLE SCLEROSIS
     Route: 042
     Dates: start: 20100506

REACTIONS (6)
  - MOOD SWINGS [None]
  - DYSGRAPHIA [None]
  - COORDINATION ABNORMAL [None]
  - HEMIPARESIS [None]
  - GRIP STRENGTH DECREASED [None]
  - DISTURBANCE IN ATTENTION [None]
